FAERS Safety Report 12931712 (Version 5)
Quarter: 2017Q1

REPORT INFORMATION
  Report Type: Report from Study
  Country: None (occurrence: TR)
  Receive Date: 20161110
  Receipt Date: 20170209
  Transmission Date: 20170428
  Serious: Yes (Hospitalization)
  Sender: FDA-Public Use
  Company Number: TR-ABBVIE-16K-161-1773735-00

PATIENT
  Age: 59 Year
  Sex: Male
  Weight: 65 kg

DRUGS (12)
  1. RESOURCE CILEKLI MAMA [Concomitant]
     Indication: NUTRITIONAL SUPPLEMENTATION
     Route: 048
     Dates: start: 201612
  2. UROREC [Concomitant]
     Active Substance: SILODOSIN
     Indication: PROSTATIC DISORDER
     Route: 048
     Dates: start: 2011
  3. STALEVO [Concomitant]
     Active Substance: CARBIDOPA\ENTACAPONE\LEVODOPA
     Indication: PRODUCT USED FOR UNKNOWN INDICATION
     Route: 048
     Dates: start: 2015
  4. NERVOGIL [Concomitant]
     Indication: PARKINSON^S DISEASE
     Route: 048
     Dates: start: 2015
  5. GYREX [Concomitant]
     Indication: SLEEP DISORDER
     Dates: start: 201608
  6. COENZ QH [Concomitant]
     Indication: VITAMIN SUPPLEMENTATION
     Route: 048
     Dates: start: 201701
  7. PROMEGA [Concomitant]
     Indication: NUTRITIONAL SUPPLEMENTATION
     Route: 048
     Dates: start: 201701
  8. DUODOPA [Suspect]
     Active Substance: CARBIDOPA\LEVODOPA
     Indication: PARKINSON^S DISEASE
     Dosage: MORNING DOSE:10ML, CONTINUOUS DOSE:4.8ML, EXTRA DOSE:1ML
     Route: 050
     Dates: start: 20161102
  9. PANOCER [Concomitant]
     Indication: PROPHYLAXIS
     Route: 048
     Dates: start: 2015, end: 2016
  10. RESOURCE GLUTAMIN [Concomitant]
     Indication: NUTRITIONAL SUPPLEMENTATION
     Route: 048
     Dates: start: 201612
  11. MOTILIUM [Concomitant]
     Active Substance: DOMPERIDONE
     Indication: PARKINSON^S DISEASE
     Route: 048
     Dates: start: 2015, end: 2016
  12. PANOCER [Concomitant]
     Indication: GASTRIC DISORDER

REACTIONS (6)
  - Bronchial secretion retention [Recovering/Resolving]
  - Pneumonia aspiration [Recovered/Resolved]
  - Nausea [Recovering/Resolving]
  - Haemoptysis [Recovered/Resolved]
  - Vomiting [Recovering/Resolving]
  - Hypertension [Unknown]

NARRATIVE: CASE EVENT DATE: 20161105
